FAERS Safety Report 23426866 (Version 1)
Quarter: 2024Q1

REPORT INFORMATION
  Report Type: Spontaneous
  Country: CN (occurrence: CN)
  Receive Date: 20240122
  Receipt Date: 20240122
  Transmission Date: 20240410
  Serious: Yes (Other)
  Sender: FDA-Public Use
  Company Number: CN-CHEPLA-2024000645

PATIENT
  Age: 48 Year
  Sex: Female
  Weight: 66.4 kg

DRUGS (2)
  1. CAPECITABINE [Suspect]
     Active Substance: CAPECITABINE
     Indication: Breast cancer
     Dosage: FREQ: BID. 1.5G IN THE MORNING, 1.5G IN THE EVENING PO D1-14, Q21D^?DAILY DOSE: 3000 GRAM
     Route: 048
     Dates: start: 20230829, end: 20231231
  2. GEMCITABINE HYDROCHLORIDE [Suspect]
     Active Substance: GEMCITABINE HYDROCHLORIDE
     Indication: Breast cancer
     Dosage: ROA: IV DRIP. 1.3G 2 TIMES IN 21 DAYS
     Route: 042
     Dates: start: 20231229, end: 20231231

REACTIONS (2)
  - Palmar-plantar erythrodysaesthesia syndrome [Recovering/Resolving]
  - Condition aggravated [Recovering/Resolving]

NARRATIVE: CASE EVENT DATE: 20231213
